FAERS Safety Report 8518398-1 (Version None)
Quarter: 2012Q3

REPORT INFORMATION
  Report Type: 
  Country: None (occurrence: None)
  Receive Date: 20120718
  Receipt Date: 20120709
  Transmission Date: 20120928
  Serious: Yes (Other)
  Sender: FDA-Public Use
  Company Number: DK-JNJFOC-20120701930

PATIENT
  Sex: Male

DRUGS (3)
  1. RISPERDAL [Suspect]
     Route: 065
     Dates: start: 20101101
  2. RISPERDAL [Suspect]
     Route: 065
  3. RISPERDAL [Suspect]
     Indication: PSYCHOMOTOR SKILLS IMPAIRED
     Route: 065
     Dates: start: 20100303

REACTIONS (3)
  - HEPATIC CIRRHOSIS [None]
  - ALANINE AMINOTRANSFERASE INCREASED [None]
  - WEIGHT INCREASED [None]
